FAERS Safety Report 14630031 (Version 1)
Quarter: 2018Q1

REPORT INFORMATION
  Report Type: Spontaneous
  Country: US (occurrence: US)
  Receive Date: 20180313
  Receipt Date: 20180313
  Transmission Date: 20180509
  Serious: Yes (Hospitalization)
  Sender: FDA-Public Use
  Company Number: None

PATIENT
  Age: 82 Year
  Sex: Male
  Weight: 84.82 kg

DRUGS (12)
  1. CARDIZEM [Concomitant]
     Active Substance: DILTIAZEM HYDROCHLORIDE
  2. PROBIOTIC [Concomitant]
     Active Substance: PROBIOTICS NOS
  3. PROTONIX [Concomitant]
     Active Substance: PANTOPRAZOLE SODIUM
  4. PREDNISONE. [Concomitant]
     Active Substance: PREDNISONE
  5. LEVOFLOXACIN. [Suspect]
     Active Substance: LEVOFLOXACIN
     Route: 048
     Dates: start: 20180217, end: 20180219
  6. LOPRESSOR [Concomitant]
     Active Substance: METOPROLOL TARTRATE
  7. ELIQUIS [Concomitant]
     Active Substance: APIXABAN
  8. LIPITOR [Concomitant]
     Active Substance: ATORVASTATIN CALCIUM
  9. FERROUS SULFATE. [Concomitant]
     Active Substance: FERROUS SULFATE
  10. ZETIA [Concomitant]
     Active Substance: EZETIMIBE
  11. PLAVIX [Concomitant]
     Active Substance: CLOPIDOGREL BISULFATE
  12. AVALIDE [Concomitant]
     Active Substance: HYDROCHLOROTHIAZIDE\IRBESARTAN

REACTIONS (3)
  - Tendon pain [None]
  - Peripheral swelling [None]
  - Limb mass [None]

NARRATIVE: CASE EVENT DATE: 20180218
